FAERS Safety Report 9866679 (Version 1)
Quarter: 2014Q1

REPORT INFORMATION
  Report Type: Spontaneous
  Country: US (occurrence: US)
  Receive Date: 20140204
  Receipt Date: 20140204
  Transmission Date: 20141002
  Serious: No
  Sender: FDA-Public Use
  Company Number: US-BIOGENIDEC-2014BI008269

PATIENT
  Age: 65 Year
  Sex: Female

DRUGS (4)
  1. TECFIDERA [Suspect]
     Indication: MULTIPLE SCLEROSIS
     Route: 048
     Dates: start: 201308
  2. CELEXA [Concomitant]
  3. LISINIPRIL [Concomitant]
  4. HCTZ [Concomitant]

REACTIONS (3)
  - Headache [Unknown]
  - Dizziness [Unknown]
  - Decreased interest [Unknown]
